FAERS Safety Report 25921775 (Version 1)
Quarter: 2025Q4

REPORT INFORMATION
  Report Type: Spontaneous
  Country: JP (occurrence: JP)
  Receive Date: 20251014
  Receipt Date: 20251014
  Transmission Date: 20260117
  Serious: Yes (Death)
  Sender: MERCK SHARP & DOHME LLC
  Company Number: JP-009507513-2337896

PATIENT
  Age: 60 Year
  Sex: Female

DRUGS (2)
  1. PEMBROLIZUMAB [Suspect]
     Active Substance: PEMBROLIZUMAB
     Indication: Uterine cancer
  2. LENVATINIB [Concomitant]
     Active Substance: LENVATINIB
     Indication: Uterine cancer

REACTIONS (1)
  - Nephrotic syndrome [Fatal]
